FAERS Safety Report 8220233-6 (Version None)
Quarter: 2012Q1

REPORT INFORMATION
  Report Type: 
  Country: None (occurrence: None)
  Receive Date: 20120320
  Receipt Date: 20120307
  Transmission Date: 20120608
  Serious: Yes (Hospitalization)
  Sender: FDA-Public Use
  Company Number: US-BAYER-2011-107353

PATIENT
  Age: 32 Year
  Sex: Female
  Weight: 63.492 kg

DRUGS (20)
  1. YASMIN [Suspect]
     Indication: POLYCYSTIC OVARIES
  2. EFFEXOR XR [Concomitant]
     Dosage: 150 MG, UNK
  3. HUMIRA [Concomitant]
  4. ZANAFLEX [Concomitant]
  5. FIORINAL [Concomitant]
  6. YASMIN [Suspect]
     Indication: MENSTRUATION IRREGULAR
  7. METHOTREXATE [Concomitant]
     Indication: ARTHRITIS
  8. CELEBREX [Concomitant]
     Indication: ARTHRITIS
     Dosage: 200 MG, UNK
  9. PRILOSEC [Concomitant]
     Indication: GASTROOESOPHAGEAL REFLUX DISEASE
     Dosage: 20 MG, UNK
  10. REQUIP [Concomitant]
     Dosage: 3 MG, UNK
  11. FENTANYL [Concomitant]
  12. SYNTHROID [Concomitant]
     Dosage: 0.1 MG, UNK
  13. NEURONTIN [Concomitant]
     Dosage: 600 MG, UNK
  14. ALLEGRA [Concomitant]
  15. ZONEGRAN [Concomitant]
     Dosage: 100 MG, UNK
  16. ZANAFLEX [Concomitant]
  17. YASMIN [Suspect]
     Indication: CONTRACEPTION
     Dosage: UNK
     Dates: start: 20041129, end: 20060716
  18. LIPITOR [Concomitant]
     Dosage: 20 MG, UNK
  19. GABITRIL [Concomitant]
     Dosage: 4 MG, UNK
  20. FROVA [Concomitant]

REACTIONS (9)
  - DYSPHAGIA [None]
  - PYREXIA [None]
  - PULMONARY ARTERY THROMBOSIS [None]
  - DRY THROAT [None]
  - OROPHARYNGEAL PAIN [None]
  - SYNCOPE [None]
  - PAIN [None]
  - PNEUMONIA [None]
  - PHARYNGITIS STREPTOCOCCAL [None]
